FAERS Safety Report 5281041-1 (Version None)
Quarter: 2007Q1

REPORT INFORMATION
  Report Type: 
  Country: None (occurrence: None)
  Receive Date: 20061229
  Receipt Date: 20060816
  Transmission Date: 20070707
  Serious: Yes (Other)
  Sender: FDA-Public Use
  Company Number: 2006UW16372

PATIENT
  Age: 53 Year
  Sex: Female
  Weight: 72.574 kg

DRUGS (1)
  1. CRESTOR [Suspect]
     Indication: HYPERCHOLESTEROLAEMIA
     Dosage: 10 MG PO
     Route: 048
     Dates: start: 20060701

REACTIONS (4)
  - DRY THROAT [None]
  - FEELING ABNORMAL [None]
  - GAIT DISTURBANCE [None]
  - PARAESTHESIA [None]
